FAERS Safety Report 8214666-1 (Version None)
Quarter: 2012Q1

REPORT INFORMATION
  Report Type: 
  Country: None (occurrence: None)
  Receive Date: 20120316
  Receipt Date: 20120308
  Transmission Date: 20120608
  Serious: No
  Sender: FDA-Public Use
  Company Number: PL-SANOFI-AVENTIS-2012SA015888

PATIENT
  Age: 40 Year
  Sex: Female
  Weight: 61 kg

DRUGS (5)
  1. KETOPROFEN [Concomitant]
  2. METHOTREXATE [Concomitant]
     Indication: RHEUMATOID ARTHRITIS
     Route: 065
     Dates: start: 20020101, end: 20120210
  3. METHYLPREDNISOLONE [Concomitant]
     Indication: RHEUMATOID ARTHRITIS
     Route: 048
     Dates: end: 20120210
  4. MESTINON [Concomitant]
     Route: 065
  5. LEFLUNOMIDE [Suspect]
     Indication: RHEUMATOID ARTHRITIS
     Route: 048
     Dates: start: 20111215, end: 20120210

REACTIONS (1)
  - PREGNANCY [None]
